FAERS Safety Report 10099304 (Version 2)
Quarter: 2014Q2

REPORT INFORMATION
  Report Type: Spontaneous
  Country: US (occurrence: US)
  Receive Date: 20140423
  Receipt Date: 20140423
  Transmission Date: 20141212
  Serious: No
  Sender: FDA-Public Use
  Company Number: US-GILEAD-2013-0068532

PATIENT
  Sex: Female

DRUGS (5)
  1. LETAIRIS [Suspect]
     Indication: COR PULMONALE CHRONIC
     Dosage: 10 MG, QD
     Route: 048
     Dates: start: 20091105
  2. LETAIRIS [Suspect]
     Indication: EMBOLISM
  3. LETAIRIS [Suspect]
     Indication: PULMONARY VASCULAR DISORDER
  4. REVATIO [Concomitant]
  5. VENTAVIS [Concomitant]

REACTIONS (1)
  - Nasopharyngitis [Unknown]
